FAERS Safety Report 5301315-5 (Version None)
Quarter: 2007Q2

REPORT INFORMATION
  Report Type: 
  Country: None (occurrence: None)
  Receive Date: 20070412
  Receipt Date: 20070327
  Transmission Date: 20071010
  Serious: Yes (Other)
  Sender: FDA-Public Use
  Company Number: 8022996

PATIENT
  Age: 46 Year
  Sex: Female

DRUGS (12)
  1. METHYLPHENIDATE HCL [Suspect]
     Indication: APATHY
     Dosage: 10 MG 2/D
  2. VENLAFAXINE HCL [Concomitant]
  3. MIRTAZAPINE [Concomitant]
  4. BUSPIRONE HCL [Concomitant]
  5. QUETIAPINE FUMARATE [Concomitant]
  6. TIZANIDINE HCL [Concomitant]
  7. OXYBUTYNIN CHLORIDE [Concomitant]
  8. INTERFERON-BETA [Concomitant]
  9. HYDROCHLOROTHIAZIDE [Concomitant]
  10. BACLOFEN [Concomitant]
  11. DIAZEPAM [Concomitant]
  12. CLONAZEPAM [Concomitant]

REACTIONS (2)
  - AKATHISIA [None]
  - DRUG INEFFECTIVE [None]
